FAERS Safety Report 25420241 (Version 2)
Quarter: 2025Q4

REPORT INFORMATION
  Report Type: Spontaneous
  Country: JP (occurrence: JP)
  Receive Date: 20250610
  Receipt Date: 20251002
  Transmission Date: 20260118
  Serious: Yes (Death, Hospitalization)
  Sender: BIOMARIN
  Company Number: JP-BIOMARINAP-JP-2025-166459

PATIENT
  Age: 56 Year
  Sex: Female
  Weight: 35 kg

DRUGS (1)
  1. VIMIZIM [Suspect]
     Active Substance: ELOSULFASE ALFA
     Indication: Mucopolysaccharidosis IV
     Dosage: 90 MILLIGRAM, QW
     Dates: start: 20180919, end: 20250519

REACTIONS (6)
  - Bronchitis [Fatal]
  - Chronic respiratory failure [Unknown]
  - Dyspnoea [Unknown]
  - Disease progression [Not Recovered/Not Resolved]
  - Cardio-respiratory arrest [Not Recovered/Not Resolved]
  - Oxygen saturation decreased [Unknown]

NARRATIVE: CASE EVENT DATE: 20250525
